FAERS Safety Report 14858956 (Version 2)
Quarter: 2018Q2

REPORT INFORMATION
  Report Type: Report from Study
  Country: DE (occurrence: DE)
  Receive Date: 20180508
  Receipt Date: 20180626
  Transmission Date: 20180711
  Serious: Yes (Hospitalization)
  Sender: FDA-Public Use
  Company Number: PHHY2018DE000697

PATIENT
  Age: 64 Year
  Sex: Female
  Weight: 92 kg

DRUGS (16)
  1. VALSARTAN. [Concomitant]
     Active Substance: VALSARTAN
     Indication: PRODUCT USED FOR UNKNOWN INDICATION
     Dosage: 160 MG, QD
     Route: 048
  2. HYDROCHLOROTHIAZIDE. [Concomitant]
     Active Substance: HYDROCHLOROTHIAZIDE
     Indication: PRODUCT USED FOR UNKNOWN INDICATION
     Dosage: 12.5 MG, QD
     Route: 048
  3. NIVOLUMAB [Concomitant]
     Active Substance: NIVOLUMAB
     Indication: MALIGNANT MELANOMA
     Dosage: 85 MG, QW3
     Route: 042
     Dates: start: 20161215, end: 20170125
  4. IPILIMUMAB [Concomitant]
     Active Substance: IPILIMUMAB
     Indication: MALIGNANT MELANOMA
     Dosage: 285 MG, QW3
     Route: 042
     Dates: start: 20161215, end: 20170125
  5. TRAMETINIB [Suspect]
     Active Substance: TRAMETINIB
     Indication: METASTATIC MALIGNANT MELANOMA
     Dosage: 2 MG, QD
     Route: 048
     Dates: start: 20160623, end: 20161215
  6. DEXAMETHASONE. [Concomitant]
     Active Substance: DEXAMETHASONE
     Indication: MALIGNANT MELANOMA
     Dosage: 4 MG, BID
     Route: 048
     Dates: start: 201606, end: 20171219
  7. CLAVULANIC ACID [Concomitant]
     Active Substance: CLAVULANIC ACID
     Indication: PRODUCT USED FOR UNKNOWN INDICATION
     Dosage: 125 MG, BID
     Route: 048
     Dates: start: 20160628, end: 20160711
  8. TAFINLAR [Suspect]
     Active Substance: DABRAFENIB MESYLATE
     Indication: METASTATIC MALIGNANT MELANOMA
     Dosage: 300 MG, BID
     Route: 048
     Dates: start: 20160623, end: 20161215
  9. MAGNESIUM [Concomitant]
     Active Substance: MAGNESIUM
     Indication: MALIGNANT MELANOMA
     Dosage: 500 MG, QD
     Route: 048
  10. AMPHOTERICIN B. [Concomitant]
     Active Substance: AMPHOTERICIN B
     Indication: PRODUCT USED FOR UNKNOWN INDICATION
     Dosage: 100 MG, TID
     Route: 048
     Dates: start: 201606, end: 201607
  11. AMOXICILLIN. [Concomitant]
     Active Substance: AMOXICILLIN
     Indication: PRODUCT USED FOR UNKNOWN INDICATION
     Dosage: 875 MG, BID
     Route: 048
     Dates: start: 20160628, end: 20160711
  12. PANTOPRAZOLE [Concomitant]
     Active Substance: PANTOPRAZOLE
     Indication: MALIGNANT MELANOMA
     Dosage: 40 MG, QD
     Route: 048
     Dates: start: 2016
  13. METAMIZOL [Concomitant]
     Active Substance: METAMIZOLE SODIUM
     Indication: MALIGNANT MELANOMA
     Dosage: 30 DRP, TID
     Route: 048
     Dates: start: 2016
  14. PREDNISOLONE. [Concomitant]
     Active Substance: PREDNISOLONE
     Indication: MALIGNANT MELANOMA
     Dosage: 5 MG, QD
     Route: 048
     Dates: start: 20171219, end: 20180102
  15. TILIDINE [Concomitant]
     Active Substance: TILIDINE
     Indication: MALIGNANT MELANOMA
     Dosage: 50 MG, BID
     Route: 048
     Dates: start: 2016
  16. NALOXONE [Concomitant]
     Active Substance: NALOXONE
     Indication: MALIGNANT MELANOMA
     Dosage: 4 MG, BID
     Route: 048
     Dates: start: 2016

REACTIONS (2)
  - General physical health deterioration [Not Recovered/Not Resolved]
  - Brain oedema [Not Recovered/Not Resolved]

NARRATIVE: CASE EVENT DATE: 20180410
